FAERS Safety Report 25586169 (Version 1)
Quarter: 2025Q3

REPORT INFORMATION
  Report Type: Spontaneous
  Country: US (occurrence: US)
  Receive Date: 20250721
  Receipt Date: 20250721
  Transmission Date: 20251021
  Serious: No
  Sender: SANOFI AVENTIS
  Company Number: US-SA-2025SA204739

PATIENT
  Sex: Female
  Weight: 70.91 kg

DRUGS (4)
  1. DUPIXENT [Suspect]
     Active Substance: DUPILUMAB
     Indication: Dermatitis atopic
     Dosage: 300 MG, QOW
     Route: 058
  2. EUCRISA [Concomitant]
     Active Substance: CRISABOROLE
  3. IBUPROFEN [Concomitant]
     Active Substance: IBUPROFEN
  4. NAPROXEN [Concomitant]
     Active Substance: NAPROXEN

REACTIONS (1)
  - Madarosis [Unknown]
